FAERS Safety Report 17986740 (Version 2)
Quarter: 2020Q4

REPORT INFORMATION
  Report Type: Spontaneous
  Country: US (occurrence: US)
  Receive Date: 20200707
  Receipt Date: 20201014
  Transmission Date: 20210113
  Serious: Yes (Other)
  Sender: FDA-Public Use
  Company Number: US-ACCORD-186754

PATIENT
  Age: 42 Year
  Sex: Male
  Weight: 90.9 kg

DRUGS (2)
  1. DAPTOMYCIN ACCORD [Suspect]
     Active Substance: DAPTOMYCIN
     Indication: PERIRECTAL ABSCESS
     Route: 042
     Dates: start: 20200617
  2. ERTAPENEM/ERTAPENEM SODIUM [Concomitant]
     Active Substance: ERTAPENEM
     Indication: PERIRECTAL ABSCESS
     Route: 042
     Dates: start: 20200617

REACTIONS (3)
  - Arthralgia [Recovered/Resolved]
  - Chills [Recovered/Resolved]
  - Nausea [Recovered/Resolved]

NARRATIVE: CASE EVENT DATE: 20200617
